FAERS Safety Report 6300658-6 (Version None)
Quarter: 2009Q3

REPORT INFORMATION
  Report Type: 
  Country: None (occurrence: None)
  Receive Date: 20090805
  Receipt Date: 20090730
  Transmission Date: 20100115
  Serious: Yes (Death, Hospitalization)
  Sender: FDA-Public Use
  Company Number: 2009US002773

PATIENT
  Age: 39 Year
  Sex: Female

DRUGS (5)
  1. PROGRAF [Suspect]
     Indication: BONE MARROW TRANSPLANT
     Dosage: 1 MG, UID/QD, ORAL, 0.5 MG, UID/QD, ORAL, 1 MG, BID, ORAL, 1 MG, UID/QD, ORAL, 0.5 MG, D, ORAL
     Route: 048
     Dates: start: 20090627, end: 20090703
  2. PROGRAF [Suspect]
     Indication: BONE MARROW TRANSPLANT
     Dosage: 1 MG, UID/QD, ORAL, 0.5 MG, UID/QD, ORAL, 1 MG, BID, ORAL, 1 MG, UID/QD, ORAL, 0.5 MG, D, ORAL
     Route: 048
     Dates: start: 20090628, end: 20090703
  3. PROGRAF [Suspect]
     Indication: BONE MARROW TRANSPLANT
     Dosage: 1 MG, UID/QD, ORAL, 0.5 MG, UID/QD, ORAL, 1 MG, BID, ORAL, 1 MG, UID/QD, ORAL, 0.5 MG, D, ORAL
     Route: 048
     Dates: start: 20090703, end: 20090706
  4. PROGRAF [Suspect]
     Indication: BONE MARROW TRANSPLANT
     Dosage: 1 MG, UID/QD, ORAL, 0.5 MG, UID/QD, ORAL, 1 MG, BID, ORAL, 1 MG, UID/QD, ORAL, 0.5 MG, D, ORAL
     Route: 048
     Dates: start: 20090706, end: 20090711
  5. PROGRAF [Suspect]
     Indication: BONE MARROW TRANSPLANT
     Dosage: 1 MG, UID/QD, ORAL, 0.5 MG, UID/QD, ORAL, 1 MG, BID, ORAL, 1 MG, UID/QD, ORAL, 0.5 MG, D, ORAL
     Route: 048
     Dates: start: 20090706, end: 20090711

REACTIONS (14)
  - ACUTE RESPIRATORY DISTRESS SYNDROME [None]
  - BRADYCARDIA [None]
  - CARDIO-RESPIRATORY ARREST [None]
  - DELIRIUM [None]
  - DYSPHAGIA [None]
  - HAEMOLYSIS [None]
  - HYPOTENSION [None]
  - OVERDOSE [None]
  - PNEUMOMEDIASTINUM [None]
  - RESPIRATORY FAILURE [None]
  - SUPRAVENTRICULAR EXTRASYSTOLES [None]
  - THERAPEUTIC AGENT TOXICITY [None]
  - TRANSFUSION-RELATED ACUTE LUNG INJURY [None]
  - VENTRICULAR EXTRASYSTOLES [None]
